FAERS Safety Report 8704751 (Version 2)
Quarter: 2012Q4

REPORT INFORMATION
  Report Type: 
  Country: US (occurrence: US)
  Receive Date: 20120803
  Receipt Date: 20120912
  Transmission Date: 20130627
  Serious: Yes (Hospitalization)
  Sender: FDA-Public Use
  Company Number: US-ELI_LILLY_AND_COMPANY-US201105001677

PATIENT
  Sex: Female
  Weight: 74.8 kg

DRUGS (26)
  1. FORTEO [Suspect]
     Indication: OSTEOPOROSIS
     Dosage: 20 ug, qd
     Route: 058
  2. FORTEO [Suspect]
     Dosage: 20 ug, qd
     Route: 058
  3. FOLIC ACID [Concomitant]
     Dosage: 1 mg, qd
     Route: 048
     Dates: start: 20110412
  4. DILANTIN [Concomitant]
     Dosage: 100 mg, bid
     Dates: start: 20111115
  5. LEVOTHYROXINE [Concomitant]
     Dosage: UNK
  6. PROLIA [Concomitant]
     Dosage: UNK
  7. INFED [Concomitant]
     Dosage: 50 DF, UNK
     Dates: start: 20090212
  8. NAPROXEN [Concomitant]
     Dosage: 500 mg, qd
     Route: 048
     Dates: start: 20110330
  9. LOPRESSOR [Concomitant]
     Dosage: 50 mg, qd
     Route: 048
     Dates: start: 20110412
  10. LEVOTHYROXINE SODIUM [Concomitant]
     Dosage: 75 mEq, qd
     Route: 048
     Dates: start: 20110418
  11. PREVACID [Concomitant]
     Dosage: 30 mg, qd
     Route: 048
     Dates: start: 20111003
  12. CALCIUM D-500 [Concomitant]
     Dosage: 500 mg, other
     Dates: start: 20111104
  13. DEPAKOTE [Concomitant]
     Dosage: 500 mg, qd
     Route: 048
     Dates: start: 20120116
  14. KEPPRA [Concomitant]
     Dosage: 750 mg, bid
     Route: 048
     Dates: start: 20111229
  15. ULTRAM [Concomitant]
     Dosage: 50 mg, prn
     Dates: start: 20120123
  16. MELOXICAM [Concomitant]
     Dosage: 15 mg, unknown
     Route: 048
     Dates: start: 20120123
  17. NEURONTIN [Concomitant]
     Dosage: 400 mg, qd
     Route: 048
     Dates: start: 20120206
  18. ADVAIR DISKUS [Concomitant]
     Dosage: UNK
     Route: 055
     Dates: start: 20120214
  19. ALBUTEROL SULFATE [Concomitant]
     Dosage: UNK, qd
     Route: 055
     Dates: start: 20120214
  20. LISINOPRIL [Concomitant]
     Dosage: 20 mg, qd
     Route: 048
     Dates: start: 20120221
  21. DICLOFENAC SODIUM [Concomitant]
     Dosage: 100 mg, qd
     Route: 048
     Dates: start: 20120423
  22. ZANAFLEX [Concomitant]
     Dosage: 4 mg, qd
     Route: 048
     Dates: start: 20120423
  23. METOPROLOL TARTRATE [Concomitant]
     Dosage: 100 mg, qd
     Route: 048
     Dates: start: 20120507
  24. LORTAB [Concomitant]
     Dosage: UNK, qd
     Route: 048
     Dates: start: 20120702
  25. AMBIEN [Concomitant]
     Dosage: 10 mg, each evening
     Route: 048
     Dates: start: 20120717
  26. CYANOCOBALAMIN [Concomitant]
     Dosage: UNK, other
     Route: 030
     Dates: start: 20120806

REACTIONS (5)
  - Hypocalcaemia [Not Recovered/Not Resolved]
  - Abdominal pain upper [Unknown]
  - Injection site pain [Unknown]
  - Paraesthesia [Unknown]
  - Feeling abnormal [Unknown]
